FAERS Safety Report 21884227 (Version 2)
Quarter: 2023Q2

REPORT INFORMATION
  Report Type: Spontaneous
  Country: US (occurrence: US)
  Receive Date: 20230119
  Receipt Date: 20230407
  Transmission Date: 20230722
  Serious: Yes (Disabling)
  Sender: FDA-Public Use
  Company Number: US-AMGEN-USASP2023007486

PATIENT
  Sex: Female

DRUGS (3)
  1. AIMOVIG [Suspect]
     Active Substance: ERENUMAB-AOOE
     Indication: Maternal exposure during breast feeding
     Dosage: UNK
     Route: 063
  2. KEPPRA [Concomitant]
     Active Substance: LEVETIRACETAM
     Indication: Maternal exposure during breast feeding
     Dosage: UNK
     Route: 063
  3. PEPCID [Concomitant]
     Active Substance: FAMOTIDINE
     Indication: Maternal exposure during breast feeding
     Dosage: UNK
     Route: 063

REACTIONS (4)
  - High arched palate [Recovered/Resolved]
  - Poor sucking reflex [Recovered/Resolved]
  - Jaundice [Recovered/Resolved]
  - Exposure via breast milk [Recovered/Resolved]

NARRATIVE: CASE EVENT DATE: 20220101
